FAERS Safety Report 6865760-9 (Version None)
Quarter: 2010Q3

REPORT INFORMATION
  Report Type: 
  Country: None (occurrence: None)
  Receive Date: 20100721
  Receipt Date: 20080616
  Transmission Date: 20110219
  Serious: No
  Sender: FDA-Public Use
  Company Number: US-PFIZER INC-2008038596

PATIENT
  Sex: Female

DRUGS (15)
  1. CHANTIX [Suspect]
     Indication: SMOKING CESSATION THERAPY
     Route: 048
     Dates: start: 20080401
  2. GLIPIZIDE [Concomitant]
  3. ALBUTEROL [Concomitant]
  4. NEXIUM [Concomitant]
     Indication: BARRETT'S OESOPHAGUS
  5. NEXIUM [Concomitant]
     Indication: GASTROINTESTINAL DISORDER
  6. ACETYLSALICYLIC ACID [Concomitant]
  7. LISINOPRIL [Concomitant]
  8. METOCLOPRAMIDE [Concomitant]
  9. LIPITOR [Concomitant]
  10. METFORMIN [Concomitant]
  11. DYAZIDE [Concomitant]
  12. LORAZEPAM [Concomitant]
  13. CALCIUM [Concomitant]
  14. TYLENOL [Concomitant]
  15. VICODIN [Concomitant]

REACTIONS (4)
  - FLATULENCE [None]
  - HYPOAESTHESIA ORAL [None]
  - PARAESTHESIA ORAL [None]
  - VOMITING [None]
